FAERS Safety Report 26218526 (Version 1)
Quarter: 2025Q4

REPORT INFORMATION
  Report Type: Spontaneous
  Country: JP (occurrence: JP)
  Receive Date: 20251231
  Receipt Date: 20251231
  Transmission Date: 20260117
  Serious: Yes (Hospitalization)
  Sender: PFIZER
  Company Number: JP-ONO-2025JP023844

PATIENT
  Age: 6 Decade
  Sex: Male

DRUGS (3)
  1. BRAFTOVI [Suspect]
     Active Substance: ENCORAFENIB
     Indication: Colon cancer
     Dosage: UNK
     Route: 048
     Dates: start: 20251224, end: 20251224
  2. MEKTOVI [Suspect]
     Active Substance: BINIMETINIB
     Indication: Colon cancer
     Dosage: UNK
     Route: 048
     Dates: start: 20251224, end: 20251224
  3. ERBITUX [Concomitant]
     Active Substance: CETUXIMAB
     Indication: Colon cancer
     Dosage: UNK
     Dates: start: 20251224, end: 20251224

REACTIONS (2)
  - Vision blurred [Recovered/Resolved]
  - Visual field defect [Recovered/Resolved]

NARRATIVE: CASE EVENT DATE: 20251224
